FAERS Safety Report 8824641 (Version 1)
Quarter: 2012Q4

REPORT INFORMATION
  Report Type: 
  Country: FR (occurrence: FR)
  Receive Date: 20121004
  Receipt Date: 20121004
  Transmission Date: 20130627
  Serious: Yes (Hospitalization)
  Sender: FDA-Public Use
  Company Number: PHHY2012FR084929

PATIENT
  Age: 25 Year
  Sex: Female

DRUGS (25)
  1. TRILEPTAL [Suspect]
     Dosage: 600 mg, UNK
     Route: 048
     Dates: start: 201201
  2. TRILEPTAL [Suspect]
     Dosage: 600 mg in the morning and in the evening
     Route: 048
     Dates: start: 201202
  3. TRILEPTAL [Suspect]
     Dosage: 150 mg in the morning and 150 mg in the evening for 1 week
     Route: 048
     Dates: start: 20120703, end: 20120709
  4. TRILEPTAL [Suspect]
     Dosage: 150 mg in the evening for 1 week
     Route: 048
  5. DEPAKINE CHRONO [Suspect]
     Dosage: 500 mg, UNK
     Route: 048
     Dates: end: 201202
  6. DEPAKINE CHRONO [Suspect]
     Dosage: UNK
     Dates: start: 201206
  7. PROGRAF [Suspect]
     Dosage: UNK UKN, UNK
     Route: 048
     Dates: start: 201202
  8. PROGRAF [Suspect]
     Dosage: UNK UKN, UNK
     Route: 048
     Dates: start: 201205
  9. ESOMEPRAZOLE [Suspect]
     Dosage: UNK
     Route: 048
  10. LASILIX [Suspect]
     Dosage: UNK UKN, UNK
     Route: 048
  11. URBANYL [Concomitant]
  12. LAMICTAL [Concomitant]
  13. AMLOR [Concomitant]
  14. ARANESP [Concomitant]
  15. CINACALCET [Concomitant]
  16. JANUVIA [Concomitant]
  17. NOVONORM [Concomitant]
  18. INSULIN LISPRO [Concomitant]
  19. INSULATARD [Concomitant]
  20. LEVOTHYROX [Concomitant]
  21. HYDROCORTISONE [Concomitant]
  22. ZYLORIC [Concomitant]
  23. UVEDOSE [Concomitant]
  24. LUTERAN [Concomitant]
  25. OESCLIM [Concomitant]

REACTIONS (4)
  - Inappropriate antidiuretic hormone secretion [Unknown]
  - Cholestasis [Unknown]
  - Convulsion [Recovered/Resolved]
  - Hyponatraemia [Recovered/Resolved]
